FAERS Safety Report 7916850 (Version 3)
Quarter: 2012Q4

REPORT INFORMATION
  Report Type: Report from Study
  Country: SE (occurrence: SE)
  Receive Date: 20110427
  Receipt Date: 20120904
  Transmission Date: 20130627
  Serious: Yes (Death, Hospitalization)
  Sender: FDA-Public Use
  Company Number: SE-CELGENEUS-150-20785-11032316

PATIENT
  Age: 78 Year
  Sex: Male
  Weight: 77 kg

DRUGS (7)
  1. THALIDOMIDE [Suspect]
     Indication: MULTIPLE MYELOMA
     Dosage: 1750 Milligram
     Route: 048
     Dates: start: 20110211, end: 20110215
  2. THALIDOMIDE [Suspect]
     Route: 048
     Dates: start: 20110311, end: 20110328
  3. MELPHALAN [Suspect]
     Indication: MULTIPLE MYELOMA
     Dosage: 56 Milligram
     Route: 048
     Dates: start: 20110211, end: 20110214
  4. MELPHALAN [Suspect]
     Route: 048
     Dates: start: 20110311, end: 20110314
  5. PREDNISONE [Suspect]
     Indication: MULTIPLE MYELOMA
     Dosage: 600 Milligram
     Route: 048
     Dates: start: 20110211, end: 20110214
  6. PREDNISONE [Suspect]
     Route: 048
     Dates: start: 20110311, end: 20110314
  7. AC SALICYCLIC ACID [Concomitant]
     Indication: DRUG USE FOR UNKNOWN INDICATION
     Dosage: 75 Milligram
     Route: 048
     Dates: start: 20110211, end: 20110314

REACTIONS (2)
  - Plasma cell myeloma [Fatal]
  - Cerebral ischaemia [Recovered/Resolved]
